FAERS Safety Report 8556629-2 (Version None)
Quarter: 2012Q2

REPORT INFORMATION
  Report Type: 
  Country: None (occurrence: None)
  Receive Date: 20120418
  Receipt Date: 20081210
  Transmission Date: 20120825
  Serious: Yes (Other)
  Sender: FDA-Public Use
  Company Number: PHEH2008US10984

PATIENT
  Sex: Female

DRUGS (2)
  1. PROTOPIC [Suspect]
     Indication: ECZEMA
  2. ELIDEL [Suspect]
     Indication: ECZEMA
     Dosage: TOPICAL
     Route: 061

REACTIONS (2)
  - NON-HODGKIN'S LYMPHOMA [None]
  - GENERAL PHYSICAL HEALTH DETERIORATION [None]
